FAERS Safety Report 22399156 (Version 1)
Quarter: 2023Q2

REPORT INFORMATION
  Report Type: Spontaneous
  Country: US (occurrence: US)
  Receive Date: 20230602
  Receipt Date: 20230602
  Transmission Date: 20230722
  Serious: No
  Sender: FDA-Public Use
  Company Number: US-BRISTOL-MYERS SQUIBB COMPANY-2023-078045

PATIENT
  Age: 57 Year
  Sex: Male
  Weight: 95.25 kg

DRUGS (1)
  1. POMALYST [Suspect]
     Active Substance: POMALIDOMIDE
     Indication: Product used for unknown indication

REACTIONS (5)
  - Respiratory symptom [Unknown]
  - Sinus congestion [Unknown]
  - Hypoacusis [Unknown]
  - White blood cell count abnormal [Unknown]
  - Productive cough [Unknown]
